FAERS Safety Report 8729872 (Version 2)
Quarter: 2012Q4

REPORT INFORMATION
  Report Type: 
  Country: US (occurrence: US)
  Receive Date: 20120817
  Receipt Date: 20120920
  Transmission Date: 20130627
  Serious: Yes (Hospitalization, Other)
  Sender: FDA-Public Use
  Company Number: US-GLAXOSMITHKLINE-A0983766A

PATIENT
  Age: 29 Year
  Sex: Female

DRUGS (3)
  1. POTIGA [Suspect]
     Indication: PARTIAL SEIZURES
     Dosage: 200MG Twice per day
     Route: 048
     Dates: start: 20120604, end: 2012
  2. DEPAKOTE ER [Concomitant]
     Dosage: 1250MG per day
  3. TOPAMAX [Concomitant]
     Dosage: 200MG Twice per day

REACTIONS (5)
  - Urosepsis [Unknown]
  - Urinary retention [Not Recovered/Not Resolved]
  - Bladder catheterisation [Not Recovered/Not Resolved]
  - Urinary tract infection [Recovered/Resolved]
  - Urinary hesitation [Recovered/Resolved]
